FAERS Safety Report 9001416 (Version 1)
Quarter: 2013Q1

REPORT INFORMATION
  Report Type: Spontaneous
  Country: US (occurrence: US)
  Receive Date: 20130107
  Receipt Date: 20130107
  Transmission Date: 20140127
  Serious: Yes (Death)
  Sender: FDA-Public Use
  Company Number: US-PFIZER INC-2013004092

PATIENT
  Age: 41 Year
  Sex: Male

DRUGS (4)
  1. DEXTROMETHORPHAN [Suspect]
  2. ETHANOL [Suspect]
  3. COCAINE [Suspect]
  4. DOXYLAMINE [Suspect]

REACTIONS (4)
  - Drug abuse [Fatal]
  - Cardiac arrest [Fatal]
  - Respiratory arrest [Fatal]
  - Toxicity to various agents [None]
